FAERS Safety Report 15234789 (Version 2)
Quarter: 2018Q3

REPORT INFORMATION
  Report Type: Spontaneous
  Country: US (occurrence: US)
  Receive Date: 20180803
  Receipt Date: 20180910
  Transmission Date: 20181010
  Serious: Yes (Hospitalization)
  Sender: FDA-Public Use
  Company Number: US-TAKEDA-2018MPI009991

PATIENT
  Age: 84 Year
  Sex: Female
  Weight: 63.49 kg

DRUGS (1)
  1. NINLARO [Suspect]
     Active Substance: IXAZOMIB CITRATE
     Indication: PLASMA CELL MYELOMA
     Dosage: 3 MG, 1/WEEK
     Route: 048
     Dates: start: 20180328

REACTIONS (4)
  - Renal disorder [Unknown]
  - Pulmonary oedema [Unknown]
  - Respiratory distress [Unknown]
  - Vomiting [Unknown]

NARRATIVE: CASE EVENT DATE: 20180901
